FAERS Safety Report 19046299 (Version 1)
Quarter: 2021Q1

REPORT INFORMATION
  Report Type: Spontaneous
  Country: TH (occurrence: TH)
  Receive Date: 20210322
  Receipt Date: 20210322
  Transmission Date: 20210420
  Serious: Yes (Other)
  Sender: FDA-Public Use
  Company Number: TH-SA-2021SA082819

PATIENT
  Age: 53 Year
  Sex: Female

DRUGS (3)
  1. ARAVA [Suspect]
     Active Substance: LEFLUNOMIDE
     Dosage: UNK UNK, QOD
     Dates: start: 202012
  2. ARAVA [Suspect]
     Active Substance: LEFLUNOMIDE
     Dosage: UNK UNK, QD
  3. METHOTREXATE. [Suspect]
     Active Substance: METHOTREXATE
     Indication: PSORIASIS

REACTIONS (9)
  - Nausea [Unknown]
  - Nasal ulcer [Unknown]
  - White blood cell count decreased [Unknown]
  - Vomiting [Unknown]
  - Systemic lupus erythematosus [Unknown]
  - Fatigue [Unknown]
  - Arthralgia [Unknown]
  - Epistaxis [Unknown]
  - Gingival pain [Unknown]

NARRATIVE: CASE EVENT DATE: 202012
